FAERS Safety Report 7660439-8 (Version None)
Quarter: 2011Q3

REPORT INFORMATION
  Report Type: 
  Country: None (occurrence: None)
  Receive Date: 20110805
  Receipt Date: 20110803
  Transmission Date: 20111222
  Serious: Yes (Death, Hospitalization)
  Sender: FDA-Public Use
  Company Number: ZW-ABBOTT-10P-190-0690517-00

PATIENT
  Age: 38 Year
  Sex: Female

DRUGS (4)
  1. LOPINAVIR/RITONAVIR [Suspect]
     Indication: HIV INFECTION
     Route: 048
     Dates: start: 20100831, end: 20110704
  2. COTRIM [Concomitant]
     Indication: PRODUCT USED FOR UNKNOWN INDICATION
     Dates: start: 20060630, end: 20110704
  3. RALTEGRAVIR [Concomitant]
     Indication: HIV INFECTION
     Dates: start: 20100831, end: 20110704
  4. STALANEV [Concomitant]
     Indication: PRODUCT USED FOR UNKNOWN INDICATION
     Dates: start: 20060101

REACTIONS (9)
  - HEPATIC FAILURE [None]
  - DIARRHOEA [None]
  - WEIGHT DECREASED [None]
  - ACUTE SINUSITIS [None]
  - GASTROENTERITIS [None]
  - PHARYNGITIS [None]
  - NIGHT SWEATS [None]
  - HERPES DERMATITIS [None]
  - DISSEMINATED TUBERCULOSIS [None]
